FAERS Safety Report 7021870-7 (Version None)
Quarter: 2010Q3

REPORT INFORMATION
  Report Type: 
  Country: None (occurrence: None)
  Receive Date: 20100930
  Receipt Date: 20100921
  Transmission Date: 20110219
  Serious: Yes (Other)
  Sender: FDA-Public Use
  Company Number: US-JNJFOC-20091201364

PATIENT
  Sex: Female
  Weight: 90.72 kg

DRUGS (7)
  1. DURAGESIC-100 [Suspect]
     Indication: BACK PAIN
     Route: 062
  2. DURAGESIC-100 [Suspect]
     Indication: PAIN
     Route: 062
  3. DURAGESIC-100 [Suspect]
     Route: 062
  4. ROXICODONE [Concomitant]
     Indication: PAIN
     Route: 048
  5. SOMA [Concomitant]
     Indication: MUSCLE SPASMS
     Route: 048
  6. XANAX [Concomitant]
     Indication: SLEEP DISORDER
     Route: 048
  7. VALIUM [Concomitant]
     Indication: MUSCLE SPASMS
     Route: 048

REACTIONS (7)
  - ARTHRALGIA [None]
  - BODY HEIGHT DECREASED [None]
  - OSTEOPOROSIS [None]
  - PRODUCT QUALITY ISSUE [None]
  - SOMNOLENCE [None]
  - THERAPEUTIC RESPONSE DECREASED [None]
  - WRONG TECHNIQUE IN DRUG USAGE PROCESS [None]
